FAERS Safety Report 6136680-2 (Version None)
Quarter: 2009Q1

REPORT INFORMATION
  Report Type: 
  Country: None (occurrence: None)
  Receive Date: 20090330
  Receipt Date: 20090218
  Transmission Date: 20090719
  Serious: Yes (Hospitalization)
  Sender: FDA-Public Use
  Company Number: PL-PFIZER INC-2009186030

PATIENT

DRUGS (4)
  1. HYDROXYZINE HCL [Suspect]
     Indication: DERMATITIS CONTACT
     Dosage: 50 MG, UNK
     Route: 048
     Dates: start: 20090127, end: 20090129
  2. LORATADINE [Suspect]
     Indication: DERMATITIS CONTACT
     Dosage: 10 MG, UNK
     Route: 048
     Dates: start: 20090127, end: 20090129
  3. CLEMASTINE [Suspect]
     Indication: DERMATITIS CONTACT
     Dosage: 2 MG, UNK
     Route: 048
     Dates: start: 20090127, end: 20090129
  4. PIMAFUCORT [Concomitant]

REACTIONS (4)
  - BALANCE DISORDER [None]
  - CONFUSIONAL STATE [None]
  - DIPLOPIA [None]
  - SOMNOLENCE [None]
